FAERS Safety Report 4505999-0 (Version None)
Quarter: 2004Q4

REPORT INFORMATION
  Report Type: 
  Country: None (occurrence: None)
  Receive Date: 20041025
  Receipt Date: 20030924
  Transmission Date: 20050328
  Serious: Yes (Other)
  Sender: FDA-Public Use
  Company Number: US-JNJFOC-20030906005

PATIENT
  Age: 34 Year
  Sex: Female
  Weight: 133.3575 kg

DRUGS (7)
  1. REMICADE [Suspect]
     Indication: CROHN'S DISEASE
     Dosage: 700 MG, INTRAVENOUS
     Route: 042
     Dates: start: 20000101
  2. REMICADE [Suspect]
     Indication: CROHN'S DISEASE
     Dosage: 700 MG, INTRAVENOUS
     Route: 042
     Dates: start: 20030701
  3. REMICADE [Suspect]
     Indication: CROHN'S DISEASE
     Dosage: 700 MG, INTRAVENOUS
     Route: 042
     Dates: start: 20030825
  4. PENTASA [Concomitant]
  5. ASACOL [Concomitant]
  6. 6-MP (MERCAPTOURINE) [Concomitant]
  7. DOXEPIN (DOXEPIN) [Concomitant]

REACTIONS (2)
  - ANAPHYLACTIC REACTION [None]
  - BREATH SOUNDS DECREASED [None]
